FAERS Safety Report 7415738-1 (Version None)
Quarter: 2011Q2

REPORT INFORMATION
  Report Type: 
  Country: None (occurrence: None)
  Receive Date: 20110414
  Receipt Date: 20110318
  Transmission Date: 20111010
  Serious: No
  Sender: FDA-Public Use
  Company Number: US-B.I. PHARMACEUTICALS,INC./RIDGEFIELD-2011-BP-08435BP

PATIENT
  Sex: Male

DRUGS (9)
  1. CARDURA [Concomitant]
     Indication: HYPERTENSION
  2. FINASTERIDE [Concomitant]
     Indication: BENIGN PROSTATIC HYPERPLASIA
  3. KADIAN [Concomitant]
     Indication: ARTHRALGIA
  4. PRADAXA [Suspect]
     Indication: ATRIAL FIBRILLATION
     Dosage: 300 MG
     Route: 048
     Dates: start: 20110103
  5. ZOCOR [Concomitant]
     Indication: BLOOD CHOLESTEROL INCREASED
  6. TRAMADOL [Concomitant]
     Indication: ARTHRALGIA
  7. MIRTAZAPINE [Concomitant]
     Indication: WEIGHT
  8. METFORMIN [Concomitant]
     Indication: TYPE 2 DIABETES MELLITUS
  9. LOTREL [Concomitant]
     Indication: HYPERTENSION

REACTIONS (2)
  - CHEST PAIN [None]
  - DYSPEPSIA [None]
